FAERS Safety Report 26121641 (Version 1)
Quarter: 2025Q4

REPORT INFORMATION
  Report Type: Spontaneous
  Country: US (occurrence: None)
  Receive Date: 20251203
  Receipt Date: 20251203
  Transmission Date: 20260118
  Serious: Yes (Disabling)
  Sender: FDA-CTU
  Company Number: None

PATIENT
  Age: 63 Year
  Sex: Male
  Weight: 112.5 kg

DRUGS (4)
  1. CIPROFLOXACIN [Suspect]
     Active Substance: CIPROFLOXACIN
     Indication: Urinary tract infection
     Dosage: OTHER QUANTITY : 20 CAPSULE(S);?FREQUENCY : DAILY;?
     Route: 048
     Dates: start: 20251110, end: 20251117
  2. Diclofenac 75 mg twice daily [Concomitant]
  3. FLOMAX [Concomitant]
     Active Substance: TAMSULOSIN HYDROCHLORIDE
  4. epidural [Concomitant]

REACTIONS (4)
  - Tendon injury [None]
  - Contusion [None]
  - Tenodesis [None]
  - Tendon rupture [None]

NARRATIVE: CASE EVENT DATE: 20251126
